FAERS Safety Report 18252499 (Version 2)
Quarter: 2020Q3

REPORT INFORMATION
  Report Type: Report from Study
  Country: IT (occurrence: IT)
  Receive Date: 20200910
  Receipt Date: 20200918
  Transmission Date: 20201103
  Serious: Yes (Other)
  Sender: FDA-Public Use
  Company Number: IT-ASTRAZENECA-2020SF14478

PATIENT
  Age: 20204 Day
  Sex: Female

DRUGS (4)
  1. LEVETIRACETAM. [Concomitant]
     Active Substance: LEVETIRACETAM
  2. VALPROIC ACID. [Concomitant]
     Active Substance: VALPROIC ACID
  3. EDOXABAN [Concomitant]
     Active Substance: EDOXABAN TOSYLATE
  4. OLAPARIB. [Suspect]
     Active Substance: OLAPARIB
     Route: 048
     Dates: start: 20200915, end: 20200831

REACTIONS (2)
  - Toxicity to various agents [Unknown]
  - Anaemia [Recovered/Resolved]

NARRATIVE: CASE EVENT DATE: 20200713
